FAERS Safety Report 7725623-3 (Version None)
Quarter: 2011Q3

REPORT INFORMATION
  Report Type: 
  Country: None (occurrence: None)
  Receive Date: 20110902
  Receipt Date: 20110823
  Transmission Date: 20111222
  Serious: Yes (Other)
  Sender: FDA-Public Use
  Company Number: US-US-EMD SERONO, INC.-7060516

PATIENT
  Sex: Male

DRUGS (8)
  1. REBIF [Suspect]
     Route: 058
     Dates: start: 20110601
  2. REBIF [Suspect]
     Indication: MULTIPLE SCLEROSIS
     Route: 058
     Dates: start: 20090220, end: 20110501
  3. MULTI-VITAMIN [Concomitant]
  4. DICYCLOMINE [Concomitant]
     Indication: MUSCLE SPASTICITY
  5. ASPIRIN [Concomitant]
  6. TRILIPIX [Concomitant]
     Indication: BLOOD CHOLESTEROL
  7. TRILIPIX [Concomitant]
     Indication: LIPIDS
  8. SIMVASTATIN [Concomitant]

REACTIONS (2)
  - LABYRINTHINE FISTULA [None]
  - BLOOD TESTOSTERONE DECREASED [None]
